FAERS Safety Report 6372288-1 (Version None)
Quarter: 2009Q3

REPORT INFORMATION
  Report Type: 
  Country: None (occurrence: None)
  Receive Date: 20090924
  Receipt Date: 20090918
  Transmission Date: 20100115
  Serious: Yes (Other)
  Sender: FDA-Public Use
  Company Number: US-BIOGENIDEC-2009BI030171

PATIENT
  Age: 19 Year
  Sex: Female

DRUGS (2)
  1. AVONEX [Suspect]
     Indication: MULTIPLE SCLEROSIS
     Route: 030
     Dates: start: 20070101, end: 20080101
  2. AVONEX [Suspect]
     Route: 030
     Dates: start: 20081201

REACTIONS (3)
  - BLINDNESS [None]
  - PROLONGED LABOUR [None]
  - UTERINE CONTRACTIONS ABNORMAL [None]
